FAERS Safety Report 8162416-X (Version None)
Quarter: 2012Q1

REPORT INFORMATION
  Report Type: 
  Country: None (occurrence: None)
  Receive Date: 20120224
  Receipt Date: 20120216
  Transmission Date: 20120608
  Serious: Yes (Other)
  Sender: FDA-Public Use
  Company Number: PHHY2012SE013930

PATIENT
  Sex: Female

DRUGS (1)
  1. ENALAPRIL MALEATE [Suspect]
     Indication: HYPERTENSION
     Dates: end: 20111101

REACTIONS (12)
  - PNEUMONIA [None]
  - DYSPHONIA [None]
  - NECK PAIN [None]
  - COUGH [None]
  - PAIN [None]
  - INFLUENZA LIKE ILLNESS [None]
  - FATIGUE [None]
  - MONOPARESIS [None]
  - PARESIS [None]
  - GAIT DISTURBANCE [None]
  - AORTIC DILATATION [None]
  - DYSSTASIA [None]
